FAERS Safety Report 17386622 (Version 1)
Quarter: 2020Q1

REPORT INFORMATION
  Report Type: Spontaneous
  Country: IL (occurrence: IL)
  Receive Date: 20200206
  Receipt Date: 20200206
  Transmission Date: 20200409
  Serious: Yes (Hospitalization, Other)
  Sender: FDA-Public Use
  Company Number: IL-ABBVIE-20K-082-3261522-00

PATIENT
  Age: 37 Year
  Sex: Female

DRUGS (3)
  1. HUMIRA [Suspect]
     Active Substance: ADALIMUMAB
     Indication: COLITIS ULCERATIVE
     Route: 058
  2. PREDNISONE. [Concomitant]
     Active Substance: PREDNISONE
     Indication: PRODUCT USED FOR UNKNOWN INDICATION
     Route: 048
  3. IRON [Concomitant]
     Active Substance: IRON
     Indication: ANAEMIA
     Route: 042

REACTIONS (8)
  - Anaemia [Unknown]
  - Tachycardia foetal [Unknown]
  - Maternal exposure during pregnancy [Unknown]
  - Malabsorption [Unknown]
  - Oligohydramnios [Unknown]
  - Inflammatory bowel disease [Unknown]
  - Haemorrhage in pregnancy [Unknown]
  - Hypoalbuminaemia [Unknown]
